FAERS Safety Report 9836456 (Version 1)
Quarter: 2014Q1

REPORT INFORMATION
  Report Type: Spontaneous
  Country: BE (occurrence: BE)
  Receive Date: 20140123
  Receipt Date: 20140123
  Transmission Date: 20141002
  Serious: Yes (Other)
  Sender: FDA-Public Use
  Company Number: BE-ROCHE-1336212

PATIENT
  Sex: 0

DRUGS (2)
  1. CELLCEPT [Suspect]
     Indication: PEMPHIGUS
     Route: 065
  2. ACYCLOVIR [Concomitant]

REACTIONS (2)
  - Neuralgia [Not Recovered/Not Resolved]
  - Off label use [Unknown]
